FAERS Safety Report 9162177 (Version 1)
Quarter: 2013Q1

REPORT INFORMATION
  Report Type: Spontaneous
  Country: US (occurrence: US)
  Receive Date: 20130314
  Receipt Date: 20130314
  Transmission Date: 20140127
  Serious: Yes (Other)
  Sender: FDA-Public Use
  Company Number: PHEH2013US005859

PATIENT
  Sex: Female

DRUGS (4)
  1. RECLAST [Suspect]
     Indication: OSTEOPOROSIS
     Dosage: 5 MG, UNK
     Route: 042
     Dates: start: 20091013
  2. RECLAST [Suspect]
     Dosage: 5 MG, UNK
     Route: 042
  3. RECLAST [Suspect]
     Dosage: 5 MG, UNK
     Route: 042
  4. RECLAST [Suspect]
     Dosage: 5 MG, UNK
     Route: 042
     Dates: start: 20120502, end: 20120502

REACTIONS (2)
  - Osteonecrosis of jaw [Unknown]
  - Pain in jaw [Unknown]
